FAERS Safety Report 10792714 (Version 2)
Quarter: 2015Q1

REPORT INFORMATION
  Report Type: Spontaneous
  Country: US (occurrence: None)
  Receive Date: 20150211
  Receipt Date: 20150219
  Transmission Date: 20150721
  Serious: Yes (Other)
  Sender: FDA-Public Use
  Company Number: 150029

PATIENT
  Age: 68 Year
  Sex: Female
  Weight: 58.97 kg

DRUGS (5)
  1. GABAPENTIN. [Concomitant]
     Active Substance: GABAPENTIN
  2. SYMBALTA [Concomitant]
  3. PLAQUENIL [Concomitant]
     Active Substance: HYDROXYCHLOROQUINE SULFATE
  4. PREDNISONE. [Concomitant]
     Active Substance: PREDNISONE
  5. SUPREP BOWEL PREP [Suspect]
     Active Substance: MAGNESIUM SULFATE\POTASSIUM SULFATE\SODIUM SULFATE
     Indication: COLONOSCOPY
     Dosage: 2 X 6OZ BOTTLE
     Route: 048
     Dates: start: 20150121, end: 20150121

REACTIONS (7)
  - Electrolyte depletion [None]
  - Pulmonary congestion [None]
  - Respiratory disorder [None]
  - Asthma [None]
  - Eye swelling [None]
  - Cough [None]
  - Peripheral swelling [None]

NARRATIVE: CASE EVENT DATE: 20150123
